FAERS Safety Report 24237078 (Version 2)
Quarter: 2024Q3

REPORT INFORMATION
  Report Type: Spontaneous
  Country: US (occurrence: US)
  Receive Date: 20240822
  Receipt Date: 20240823
  Transmission Date: 20241017
  Serious: Yes (Hospitalization, Other)
  Sender: RANBAXY
  Company Number: US-SUN PHARMACEUTICAL INDUSTRIES LTD-2024R1-463667

PATIENT
  Age: 15 Month
  Sex: Female

DRUGS (1)
  1. DEXAMETHASONE [Suspect]
     Active Substance: DEXAMETHASONE
     Indication: Atrioventricular block second degree
     Dosage: 0.3 MILLIGRAM/KILOGRAM
     Route: 065

REACTIONS (1)
  - Atrioventricular block complete [Recovered/Resolved]
